FAERS Safety Report 14267580 (Version 1)
Quarter: 2017Q4

REPORT INFORMATION
  Report Type: Spontaneous
  Country: US (occurrence: US)
  Receive Date: 20171210
  Receipt Date: 20171210
  Transmission Date: 20180321
  Serious: No
  Sender: FDA-Public Use
  Company Number: None

PATIENT
  Age: 32 Year
  Sex: Female
  Weight: 56.25 kg

DRUGS (4)
  1. DEPAKOTE [Concomitant]
     Active Substance: DIVALPROEX SODIUM
  2. FLUOCINONIDE NDC 68462-505-66 [Suspect]
     Active Substance: FLUOCINONIDE
     Indication: SKIN INFECTION
     Dosage: ?          QUANTITY:1 1;?
     Route: 061
     Dates: start: 20171207, end: 20171210
  3. PRIMIDONE. [Concomitant]
     Active Substance: PRIMIDONE
  4. XANAX [Concomitant]
     Active Substance: ALPRAZOLAM

REACTIONS (5)
  - Heart rate increased [None]
  - Chemical burn of skin [None]
  - Blister [None]
  - Dermatitis [None]
  - Secretion discharge [None]

NARRATIVE: CASE EVENT DATE: 20171208
